FAERS Safety Report 8785619 (Version 1)
Quarter: 2012Q4

REPORT INFORMATION
  Report Type: Spontaneous
  Country: DE (occurrence: None)
  Receive Date: 20120831
  Receipt Date: 20120831
  Transmission Date: 20130627
  Serious: Yes (Disabling, Other)
  Sender: FDA-Public Use
  Company Number: AVE_02190_2012

PATIENT
  Age: 52 Year
  Sex: Male

DRUGS (2)
  1. CLONIDINE HYDROCHLORIDE [Suspect]
     Indication: PAIN
     Dosage: increased 33 g/d per week
     Route: 037
  2. MORPHINE [Suspect]
     Indication: PAIN
     Route: 037

REACTIONS (2)
  - Erectile dysfunction [None]
  - Hypotension [None]
